FAERS Safety Report 15298533 (Version 1)
Quarter: 2018Q4

REPORT INFORMATION
  Report Type: Spontaneous
  Country: FR (occurrence: FR)
  Receive Date: 20180820
  Receipt Date: 20180820
  Transmission Date: 20190204
  Serious: Yes (Hospitalization)
  Sender: FDA-Public Use
  Company Number: FR-NAPPMUNDI-GBR-2011-0008865

PATIENT
  Age: 53 Year
  Sex: Male

DRUGS (17)
  1. XANAX [Suspect]
     Active Substance: ALPRAZOLAM
     Indication: ANXIETY
     Dosage: 0.5 MG, DAILY
     Route: 042
     Dates: start: 20101201, end: 20110113
  2. TRIFLUCAN [Suspect]
     Active Substance: FLUCONAZOLE
     Indication: PROPHYLAXIS
     Dosage: 2 MG/ML, BID
     Route: 042
     Dates: start: 20101218, end: 20110112
  3. LASILIX                            /00032601/ [Concomitant]
     Active Substance: FUROSEMIDE
     Indication: CARDIAC FAILURE
     Dosage: UNK
     Dates: start: 20101203, end: 20101228
  4. COVERSYL                           /00790702/ [Suspect]
     Active Substance: PERINDOPRIL
     Indication: CARDIAC FAILURE
     Dosage: 5 MG, DAILY
     Route: 065
     Dates: start: 20101225, end: 20110124
  5. ALDACTONE [Suspect]
     Active Substance: SPIRONOLACTONE
     Indication: CARDIAC FAILURE
     Dosage: 50 MG, DAILY
     Route: 065
     Dates: start: 20101229, end: 20110113
  6. PREVISCAN                          /00261401/ [Concomitant]
     Active Substance: PENTOXIFYLLINE
     Indication: ARRHYTHMIA
     Dosage: 20 MG, DAILY
     Route: 048
     Dates: start: 20110113, end: 20110124
  7. RIFADINE                           /00146901/ [Concomitant]
     Active Substance: RIFAMPIN
     Indication: INFECTION
     Dosage: 600 MG, BID
     Route: 042
     Dates: start: 20101217, end: 20110117
  8. LOXEN (NICARDIPINE HYDROCHLORIDE) [Suspect]
     Active Substance: NICARDIPINE HYDROCHLORIDE
     Indication: HYPERTENSION
     Dosage: 50 MG, DAILY
     Route: 048
     Dates: start: 20101224, end: 20110124
  9. REVATIO [Concomitant]
     Active Substance: SILDENAFIL CITRATE
     Indication: PULMONARY ARTERIAL HYPERTENSION
     Dosage: UNK, TID
     Route: 048
     Dates: start: 20101206, end: 20110217
  10. ZYRTEC [Concomitant]
     Active Substance: CETIRIZINE HYDROCHLORIDE
     Indication: PROPHYLAXIS
     Dosage: 10 MG, DAILY
     Route: 048
     Dates: start: 20110118, end: 20110129
  11. LASILIX                            /00032601/ [Concomitant]
     Active Substance: FUROSEMIDE
     Dosage: UNK
     Route: 048
     Dates: start: 20101229, end: 20110113
  12. LYRICA [Concomitant]
     Active Substance: PREGABALIN
     Indication: PAIN
     Dosage: 150 MG, TID
     Route: 048
     Dates: start: 20101230, end: 20110113
  13. NEXIUM [Concomitant]
     Active Substance: ESOMEPRAZOLE MAGNESIUM
     Indication: PROPHYLAXIS
     Dosage: 40 MG, DAILY
     Dates: start: 20101220, end: 20110113
  14. OXYNORM SOLUTION INJECTABLE [Suspect]
     Active Substance: OXYCODONE HYDROCHLORIDE
     Indication: PAIN
     Dosage: UNK UNK, PRN
     Route: 042
     Dates: start: 20101219, end: 20110112
  15. VANCOMYCINE [Suspect]
     Active Substance: VANCOMYCIN
     Indication: INFECTION
     Dosage: 2 UNK, UNK
     Route: 042
     Dates: start: 20101217, end: 20110116
  16. HEPARIN SODIUM. [Concomitant]
     Active Substance: HEPARIN SODIUM
     Indication: PROPHYLAXIS
     Dosage: UNK
     Route: 042
     Dates: start: 20101201
  17. COROTROPE [Concomitant]
     Active Substance: MILRINONE
     Indication: CARDIAC FAILURE
     Dosage: 10 MG/ML, UNK
     Route: 048
     Dates: start: 20101201, end: 20110203

REACTIONS (1)
  - Drug reaction with eosinophilia and systemic symptoms [Recovering/Resolving]

NARRATIVE: CASE EVENT DATE: 20110122
